FAERS Safety Report 23338981 (Version 1)
Quarter: 2023Q4

REPORT INFORMATION
  Report Type: Spontaneous
  Country: IT (occurrence: IT)
  Receive Date: 20231226
  Receipt Date: 20231226
  Transmission Date: 20240109
  Serious: Yes (Hospitalization)
  Sender: FDA-Public Use
  Company Number: None

PATIENT
  Age: 70 Year
  Sex: Female
  Weight: 56 kg

DRUGS (2)
  1. OXALIPLATIN [Suspect]
     Active Substance: OXALIPLATIN
     Indication: Small intestine carcinoma
     Dosage: 130 MG EVERY 14 DAYS?INTRAVENOUS?ROA-20045000
     Dates: start: 20231204, end: 20231204
  2. CAPECITABINE [Suspect]
     Active Substance: CAPECITABINE
     Indication: Small intestine carcinoma
     Dosage: 1000 MG PER DAY?ORAL?ROA-20053000
     Dates: start: 20181206, end: 20231204

REACTIONS (2)
  - Pulmonary oedema [Not Recovered/Not Resolved]
  - Bronchospasm [Not Recovered/Not Resolved]

NARRATIVE: CASE EVENT DATE: 20231204
